FAERS Safety Report 7725433-7 (Version None)
Quarter: 2011Q3

REPORT INFORMATION
  Report Type: 
  Country: None (occurrence: None)
  Receive Date: 20110902
  Receipt Date: 20110823
  Transmission Date: 20111222
  Serious: Yes (Hospitalization)
  Sender: FDA-Public Use
  Company Number: JP-UCBSA-035793

PATIENT
  Sex: Female

DRUGS (16)
  1. LAMOTRIGINE [Concomitant]
     Indication: CLONIC CONVULSION
     Dosage: TOTAL DAILY DOSE: 200 MG
     Route: 048
     Dates: start: 20100928, end: 20101020
  2. LAMOTRIGINE [Concomitant]
     Dosage: TOTAL DAILY DOSE: 300 MG
     Route: 048
     Dates: start: 20101021, end: 20101103
  3. LAMOTRIGINE [Concomitant]
     Dosage: TOTAL DAILY DOSE: 300 MG
     Route: 048
     Dates: start: 20101021, end: 20101103
  4. LAMOTRIGINE [Concomitant]
     Dosage: TOTAL DAILY DOSE: 350 MG
     Route: 048
     Dates: start: 20101104, end: 20101201
  5. LAMOTRIGINE [Concomitant]
     Dosage: TOTAL DAILY DOSE: 400 MG
     Route: 048
     Dates: start: 20101202, end: 20110608
  6. KEPPRA [Suspect]
     Indication: COMPLEX PARTIAL SEIZURES
     Dosage: 19-MAY-2011 250 MG/DAY
     Route: 048
     Dates: start: 20110609, end: 20110615
  7. LAMOTRIGINE [Concomitant]
     Indication: COMPLEX PARTIAL SEIZURES
     Dosage: TOTAL DAILY DOSE: 200 MG
     Route: 048
     Dates: start: 20100928, end: 20101020
  8. LAMOTRIGINE [Concomitant]
     Dosage: TOTAL DAILY DOSE: 350 MG
     Route: 048
     Dates: start: 20101104, end: 20101201
  9. KEPPRA [Suspect]
     Indication: SIMPLE PARTIAL SEIZURES
     Dosage: 19-MAY-2011 250 MG/DAY
     Route: 048
     Dates: start: 20110609, end: 20110615
  10. LAMOTRIGINE [Concomitant]
     Dosage: TOTAL DAILY DOSE: 350 MG
     Route: 048
     Dates: start: 20101104, end: 20101201
  11. LAMOTRIGINE [Concomitant]
     Dosage: TOTAL DAILY DOSE: 400 MG
     Route: 048
     Dates: start: 20101202, end: 20110608
  12. KEPPRA [Suspect]
     Indication: EPILEPSY
     Dosage: 19-MAY-2011 250 MG/DAY
     Route: 048
     Dates: start: 20110609, end: 20110615
  13. LAMOTRIGINE [Concomitant]
     Dosage: TOTAL DAILY DOSE: 300 MG
     Route: 048
     Dates: start: 20101021, end: 20101103
  14. KEPPRA [Suspect]
     Indication: CLONIC CONVULSION
     Dosage: 19-MAY-2011 250 MG/DAY
     Route: 048
     Dates: start: 20110609, end: 20110615
  15. LAMOTRIGINE [Concomitant]
     Indication: SIMPLE PARTIAL SEIZURES
     Dosage: TOTAL DAILY DOSE: 200 MG
     Route: 048
     Dates: start: 20100928, end: 20101020
  16. LAMOTRIGINE [Concomitant]
     Dosage: TOTAL DAILY DOSE: 400 MG
     Route: 048
     Dates: start: 20101202, end: 20110608

REACTIONS (2)
  - PYREXIA [None]
  - TONSILLAR HYPERTROPHY [None]
